FAERS Safety Report 11993034 (Version 1)
Quarter: 2016Q1

REPORT INFORMATION
  Report Type: Spontaneous
  Country: US (occurrence: US)
  Receive Date: 20160203
  Receipt Date: 20160203
  Transmission Date: 20160526
  Serious: No
  Sender: FDA-Public Use
  Company Number: US-ELI_LILLY_AND_COMPANY-US201601006341

PATIENT
  Age: 89 Year
  Sex: Female

DRUGS (6)
  1. METOPROLOL. [Concomitant]
     Active Substance: METOPROLOL
  2. VITAMIN D [Concomitant]
     Active Substance: CHOLECALCIFEROL
  3. DIGOXIN. [Concomitant]
     Active Substance: DIGOXIN
  4. PROLIA [Concomitant]
     Active Substance: DENOSUMAB
  5. FORTEO [Suspect]
     Active Substance: TERIPARATIDE
     Indication: OSTEOPOROSIS
     Dosage: 20 UG, QD
     Route: 065
     Dates: start: 20151012
  6. WARFARIN [Concomitant]
     Active Substance: WARFARIN

REACTIONS (14)
  - Chills [Unknown]
  - Bursitis [Unknown]
  - Insomnia [Unknown]
  - Drug dose omission [Unknown]
  - Gait disturbance [Unknown]
  - Mass [Unknown]
  - Pruritus [Unknown]
  - Scratch [Unknown]
  - Wound [Unknown]
  - Rhinorrhoea [Unknown]
  - Arthralgia [Unknown]
  - Nervousness [Unknown]
  - Agitation [Unknown]
  - Pain in extremity [Unknown]

NARRATIVE: CASE EVENT DATE: 201512
